FAERS Safety Report 11229268 (Version 2)
Quarter: 2015Q3

REPORT INFORMATION
  Report Type: Spontaneous
  Country: US (occurrence: US)
  Receive Date: 20150630
  Receipt Date: 20150724
  Transmission Date: 20151125
  Serious: No
  Sender: FDA-Public Use
  Company Number: US-PFIZER INC-2015212908

PATIENT
  Age: 27 Year
  Sex: Male

DRUGS (1)
  1. CHANTIX [Suspect]
     Active Substance: VARENICLINE TARTRATE
     Dosage: UNK

REACTIONS (8)
  - Dizziness [Unknown]
  - Abdominal pain upper [Unknown]
  - Syncope [Unknown]
  - Cold sweat [Unknown]
  - Presyncope [Unknown]
  - Malaise [Unknown]
  - Abdominal pain [Unknown]
  - Feeling cold [Unknown]
